FAERS Safety Report 19262334 (Version 4)
Quarter: 2021Q3

REPORT INFORMATION
  Report Type: Spontaneous
  Country: NL (occurrence: NL)
  Receive Date: 20210516
  Receipt Date: 20210718
  Transmission Date: 20211014
  Serious: Yes (Disabling, Other)
  Sender: FDA-Public Use
  Company Number: NL-JNJFOC-20210514066

PATIENT
  Age: 68 Year
  Sex: Female

DRUGS (8)
  1. XARELTO [Suspect]
     Active Substance: RIVAROXABAN
     Indication: PULMONARY EMBOLISM
  2. PANTOPRAZOLE [Concomitant]
     Active Substance: PANTOPRAZOLE
     Dosage: 20 MG, QD
  3. XARELTO [Suspect]
     Active Substance: RIVAROXABAN
     Indication: EMBOLISM VENOUS
     Route: 048
     Dates: start: 20190830
  4. PRADAXA [Concomitant]
     Active Substance: DABIGATRAN ETEXILATE MESYLATE
     Dosage: 150 MG, BID
     Dates: start: 20210413, end: 20210505
  5. XARELTO [Suspect]
     Active Substance: RIVAROXABAN
     Indication: THROMBOSIS PROPHYLAXIS
     Dosage: 10 MG, QD
     Route: 048
     Dates: start: 202103
  6. CHLOORTALIDON [Concomitant]
     Active Substance: CHLORTHALIDONE
     Dosage: 25 MG, QD
     Dates: start: 20190425, end: 20210225
  7. CETOMACROGOL [Concomitant]
     Active Substance: COSMETICS
     Dosage: UNK
     Dates: start: 20210210
  8. ACENOCOUMAROL [Concomitant]
     Active Substance: ACENOCOUMAROL
     Dosage: 1 MG
     Dates: start: 202105

REACTIONS (10)
  - Insomnia [Recovered/Resolved]
  - Musculoskeletal disorder [Recovered/Resolved]
  - Oedema [Recovered/Resolved]
  - Pain in extremity [Recovered/Resolved]
  - Musculoskeletal disorder [Recovered/Resolved]
  - Pain in extremity [Recovered/Resolved]
  - Musculoskeletal stiffness [Recovered/Resolved]
  - Dyspnoea [Recovered/Resolved]
  - Myalgia [Recovered/Resolved]
  - Muscular weakness [Recovered/Resolved]

NARRATIVE: CASE EVENT DATE: 20191225
